FAERS Safety Report 17823098 (Version 1)
Quarter: 2020Q2

REPORT INFORMATION
  Report Type: Spontaneous
  Country: US (occurrence: US)
  Receive Date: 20200523
  Receipt Date: 20200523
  Transmission Date: 20200714
  Serious: Yes (Life-Threatening)
  Sender: FDA-Public Use
  Company Number: None

PATIENT
  Age: 66 Year
  Sex: Male
  Weight: 135.62 kg

DRUGS (12)
  1. ATARAX [Concomitant]
     Active Substance: HYDROXYZINE HYDROCHLORIDE
     Dates: start: 20200517, end: 20200518
  2. LOVENOX [Concomitant]
     Active Substance: ENOXAPARIN SODIUM
     Dates: start: 20200517, end: 20200518
  3. ATIVAN [Concomitant]
     Active Substance: LORAZEPAM
  4. VERSED [Concomitant]
     Active Substance: MIDAZOLAM HYDROCHLORIDE
     Dates: start: 20200518, end: 20200518
  5. INSULIN LISPRO [Concomitant]
     Active Substance: INSULIN LISPRO
     Dates: start: 20200513, end: 20200513
  6. REMDESIVIR. [Suspect]
     Active Substance: REMDESIVIR
     Indication: COVID-19
     Route: 042
     Dates: start: 20200516, end: 20200518
  7. METHYLPREDNISOLONE. [Concomitant]
     Active Substance: METHYLPREDNISOLONE
     Dates: start: 20200510, end: 20200519
  8. ASPIRIN. [Concomitant]
     Active Substance: ASPIRIN
     Dates: start: 20200510, end: 20200518
  9. DILTIAZEM. [Concomitant]
     Active Substance: DILTIAZEM
     Dates: start: 20200511, end: 20200518
  10. KETAMINE [Concomitant]
     Active Substance: KETAMINE
     Dates: start: 20200513, end: 20200518
  11. PROTONIX [Concomitant]
     Active Substance: PANTOPRAZOLE SODIUM
     Dates: start: 20200515
  12. FENTANYL. [Concomitant]
     Active Substance: FENTANYL
     Dates: start: 20200513

REACTIONS (10)
  - Metabolic acidosis [None]
  - Hypovolaemic shock [None]
  - Glomerular filtration rate decreased [None]
  - Blood creatine increased [None]
  - Shock haemorrhagic [None]
  - Gastrointestinal haemorrhage [None]
  - Renal failure [None]
  - Dialysis [None]
  - Hepatic failure [None]
  - Hyperkalaemia [None]

NARRATIVE: CASE EVENT DATE: 20200520
